FAERS Safety Report 22530747 (Version 1)
Quarter: 2023Q2

REPORT INFORMATION
  Report Type: Spontaneous
  Country: US (occurrence: US)
  Receive Date: 20230607
  Receipt Date: 20230607
  Transmission Date: 20230721
  Serious: Yes (Hospitalization)
  Sender: FDA-Public Use
  Company Number: US-PFIZER INC-202300209092

PATIENT
  Age: 82 Year
  Sex: Female
  Weight: 58.97 kg

DRUGS (5)
  1. DEPO-ESTRADIOL [Suspect]
     Active Substance: ESTRADIOL CYPIONATE
     Dosage: UNK
     Dates: start: 20220611
  2. ASPIRIN [Concomitant]
     Active Substance: ASPIRIN
     Dosage: UNK, AS NEEDED (SHE HAS BEEN TAKING ON AND OFF FOR YEARS AND THEN AFTER TIAS)
  3. ASPIRIN [Concomitant]
     Active Substance: ASPIRIN
     Dosage: 81 MG, 1X/DAY
     Route: 048
  4. LEVOTHYROXINE [Concomitant]
     Active Substance: LEVOTHYROXINE
     Indication: Hypothyroidism
     Dosage: 50 UG (TAKES ONE TABLET ON TUESDAY, THURSDAY, SATURDAY AND SUNDAY)
     Route: 048
  5. LEVOTHYROXINE [Concomitant]
     Active Substance: LEVOTHYROXINE
     Dosage: 100 UG (TAKES TWO TABLETS ON MONDAY, WEDNESDAY AND FRIDAY)

REACTIONS (2)
  - Transient ischaemic attack [Unknown]
  - Product dose omission issue [Unknown]

NARRATIVE: CASE EVENT DATE: 20221201
